FAERS Safety Report 9394384 (Version 1)
Quarter: 2013Q3

REPORT INFORMATION
  Report Type: Spontaneous
  Country: US (occurrence: US)
  Receive Date: 20130711
  Receipt Date: 20130711
  Transmission Date: 20140515
  Serious: Yes (Hospitalization)
  Sender: FDA-Public Use
  Company Number: US-ASTRAZENECA-2013SE51147

PATIENT
  Age: 68 Year
  Sex: Male

DRUGS (3)
  1. BRILINTA [Suspect]
     Indication: STENT PLACEMENT
     Route: 048
     Dates: end: 20130630
  2. BRILINTA [Suspect]
     Indication: STENT PLACEMENT
     Route: 048
     Dates: start: 20130701
  3. ON MULTIPLE MEDICATIONS [Concomitant]

REACTIONS (2)
  - Myocardial infarction [Unknown]
  - Drug dose omission [Unknown]
